FAERS Safety Report 26151400 (Version 1)
Quarter: 2025Q4

REPORT INFORMATION
  Report Type: Spontaneous
  Country: US (occurrence: US)
  Receive Date: 20251212
  Receipt Date: 20251212
  Transmission Date: 20260117
  Serious: No
  Sender: ROCHE
  Company Number: US-ROCHE-10000455659

PATIENT
  Sex: Male

DRUGS (1)
  1. ERIVEDGE [Suspect]
     Active Substance: VISMODEGIB
     Indication: Ill-defined disorder
     Route: 048
     Dates: start: 202508

REACTIONS (3)
  - Off label use [Unknown]
  - Alopecia [Unknown]
  - Blister [Unknown]
